FAERS Safety Report 4713600-6 (Version None)
Quarter: 2005Q3

REPORT INFORMATION
  Report Type: 
  Country: None (occurrence: None)
  Receive Date: 20050712
  Receipt Date: 20050622
  Transmission Date: 20060218
  Serious: Yes (Hospitalization, Other)
  Sender: FDA-Public Use
  Company Number: 2005-01107

PATIENT
  Age: 56 Year
  Sex: Male

DRUGS (1)
  1. IMMUCYST [Suspect]
     Indication: BLADDER CANCER
     Dosage: 40.5 MG/WEEK (40.5 MG),I.VES.,BLADDER
     Dates: start: 20050301, end: 20050412

REACTIONS (4)
  - BACK PAIN [None]
  - HYPERTHERMIA [None]
  - MONARTHRITIS [None]
  - NECK PAIN [None]
